FAERS Safety Report 25444334 (Version 1)
Quarter: 2025Q2

REPORT INFORMATION
  Report Type: Spontaneous
  Country: JP (occurrence: JP)
  Receive Date: 20250617
  Receipt Date: 20250617
  Transmission Date: 20250717
  Serious: Yes (Other)
  Sender: GLAXOSMITHKLINE
  Company Number: JP-GSK-JP2025JPN072199

PATIENT
  Age: 85 Year
  Sex: Female
  Weight: 46.5 kg

DRUGS (9)
  1. VALACYCLOVIR HYDROCHLORIDE [Suspect]
     Active Substance: VALACYCLOVIR HYDROCHLORIDE
     Indication: Herpes zoster
     Dosage: 1000 MG, TID
  2. PREGABALIN [Suspect]
     Active Substance: PREGABALIN
     Indication: Herpes zoster
     Dosage: 25 MG, 1D
  3. SODIUM FERROUS CITRATE [Concomitant]
     Active Substance: SODIUM FERROUS CITRATE
  4. URSODIOL [Concomitant]
     Active Substance: URSODIOL
  5. RABEPRAZOLE SODIUM [Concomitant]
     Active Substance: RABEPRAZOLE SODIUM
  6. MIRABEGRON [Concomitant]
     Active Substance: MIRABEGRON
  7. AMLODIPINE [Concomitant]
     Active Substance: AMLODIPINE BESYLATE
  8. AZILSARTAN KAMEDOXOMIL [Concomitant]
     Active Substance: AZILSARTAN KAMEDOXOMIL
  9. AMENAMEVIR [Concomitant]
     Active Substance: AMENAMEVIR

REACTIONS (10)
  - Altered state of consciousness [Recovering/Resolving]
  - Facial paralysis [Unknown]
  - Acute kidney injury [Recovering/Resolving]
  - Toxic encephalopathy [Unknown]
  - Nephropathy toxic [Recovered/Resolved]
  - Renal impairment [Unknown]
  - Visual impairment [Unknown]
  - Speech disorder [Unknown]
  - Prescribed overdose [Unknown]
  - Off label use [Unknown]

NARRATIVE: CASE EVENT DATE: 20250512
